FAERS Safety Report 5859309-7 (Version None)
Quarter: 2008Q3

REPORT INFORMATION
  Report Type: 
  Country: None (occurrence: None)
  Receive Date: 20080826
  Receipt Date: 20080826
  Transmission Date: 20090109
  Serious: Yes (Life-Threatening)
  Sender: FDA-Public Use
  Company Number: None

PATIENT
  Age: 66 Year
  Sex: Male
  Weight: 83 kg

DRUGS (1)
  1. EPOETIN ALFA,RECOMBINANT [Suspect]
     Indication: ANAEMIA
     Dosage: 28000 UNITS OTHER SQ
     Dates: start: 20080410

REACTIONS (8)
  - CEREBRAL INFARCTION [None]
  - DIPLOPIA [None]
  - DYSARTHRIA [None]
  - HAEMOGLOBIN DECREASED [None]
  - HYPOAESTHESIA [None]
  - PARAESTHESIA [None]
  - TRANSIENT ISCHAEMIC ATTACK [None]
  - VISION BLURRED [None]
